FAERS Safety Report 16482365 (Version 7)
Quarter: 2022Q2

REPORT INFORMATION
  Report Type: Report from Study
  Country: JP (occurrence: JP)
  Receive Date: 20190627
  Receipt Date: 20220624
  Transmission Date: 20220721
  Serious: Yes (Other)
  Sender: FDA-Public Use
  Company Number: JP-VIIV HEALTHCARE LIMITED-JP2018JPN132462

PATIENT

DRUGS (13)
  1. DOLUTEGRAVIR [Suspect]
     Active Substance: DOLUTEGRAVIR
     Indication: HIV infection
     Dosage: 50 MG, 1D
     Route: 048
     Dates: start: 20170329
  2. DESCOVY [Suspect]
     Active Substance: EMTRICITABINE\TENOFOVIR ALAFENAMIDE FUMARATE
     Indication: HIV infection
     Dosage: 1 DF, 1D
     Route: 048
     Dates: start: 20170329
  3. XYZAL [Concomitant]
     Active Substance: LEVOCETIRIZINE DIHYDROCHLORIDE
     Dosage: UNK
     Dates: start: 20180312, end: 20180610
  4. XYZAL [Concomitant]
     Active Substance: LEVOCETIRIZINE DIHYDROCHLORIDE
     Dosage: UNK
     Dates: start: 20200315, end: 20210614
  5. XYZAL [Concomitant]
     Active Substance: LEVOCETIRIZINE DIHYDROCHLORIDE
     Dosage: UNK
     Dates: start: 20220318
  6. MONTELUKAST SODIUM [Concomitant]
     Active Substance: MONTELUKAST SODIUM
     Dosage: UNK
     Dates: start: 20180312, end: 20180610
  7. ALESION OPHTHALMIC SOLUTION 0.05% [Concomitant]
     Dosage: UNK
     Dates: start: 20180328, end: 20180610
  8. ALESION OPHTHALMIC SOLUTION 0.05% [Concomitant]
     Dosage: UNK
     Dates: start: 20210315, end: 20210614
  9. ALESION OPHTHALMIC SOLUTION 0.05% [Concomitant]
     Dosage: UNK
     Dates: start: 20220318
  10. FEXOFENADINE HYDROCHLORIDE\PSEUDOEPHEDRINE HYDROCHLORIDE [Concomitant]
     Active Substance: FEXOFENADINE HYDROCHLORIDE\PSEUDOEPHEDRINE HYDROCHLORIDE
     Dosage: UNK
     Dates: start: 20190410, end: 20190509
  11. SINGULAIR [Concomitant]
     Active Substance: MONTELUKAST SODIUM
     Dosage: UNK
     Dates: start: 20200315, end: 20210614
  12. SINGULAIR [Concomitant]
     Active Substance: MONTELUKAST SODIUM
     Dosage: UNK
     Dates: start: 20220318
  13. FLUTICASONE FUROATE [Concomitant]
     Active Substance: FLUTICASONE FUROATE
     Dosage: UNK
     Route: 045
     Dates: start: 20210315, end: 20210614

REACTIONS (12)
  - Beta 2 microglobulin urine increased [Recovered/Resolved]
  - Blood creatinine increased [Recovered/Resolved]
  - Blood triglycerides increased [Recovered/Resolved]
  - Enteritis infectious [Recovering/Resolving]
  - Irritable bowel syndrome [Recovering/Resolving]
  - Impetigo [Recovering/Resolving]
  - Sinusitis [Recovering/Resolving]
  - Sinusitis [Recovering/Resolving]
  - Haematospermia [Recovered/Resolved]
  - Gastritis [Not Recovered/Not Resolved]
  - Syphilis [Not Recovered/Not Resolved]
  - Tinea pedis [Recovering/Resolving]

NARRATIVE: CASE EVENT DATE: 20170501
